FAERS Safety Report 19112926 (Version 1)
Quarter: 2021Q2

REPORT INFORMATION
  Report Type: Report from Study
  Country: RO (occurrence: RO)
  Receive Date: 20210408
  Receipt Date: 20210408
  Transmission Date: 20210717
  Serious: Yes (Other)
  Sender: FDA-Public Use
  Company Number: NVSC2021RO076997

PATIENT
  Age: 85 Year
  Sex: Female

DRUGS (2)
  1. EXELON [Suspect]
     Active Substance: RIVASTIGMINE TARTRATE
     Indication: PRODUCT USED FOR UNKNOWN INDICATION
     Dosage: 9.5 MG, FOR 6 YEARS
     Route: 065
  2. ELIQUIS [Concomitant]
     Active Substance: APIXABAN
     Indication: PRODUCT USED FOR UNKNOWN INDICATION
     Dosage: UNK
     Route: 065

REACTIONS (13)
  - Visual impairment [Unknown]
  - Anaemia megaloblastic [Unknown]
  - Cardiac disorder [Unknown]
  - Hypokinesia [Unknown]
  - Gastric cancer [Unknown]
  - Cerebrovascular disorder [Unknown]
  - Mental disorder [Unknown]
  - Polyp [Unknown]
  - Head discomfort [Unknown]
  - Renal disorder [Unknown]
  - Lung disorder [Unknown]
  - Dementia Alzheimer^s type [Unknown]
  - Dizziness [Unknown]

NARRATIVE: CASE EVENT DATE: 202010
